FAERS Safety Report 10514538 (Version 1)
Quarter: 2014Q4

REPORT INFORMATION
  Report Type: Spontaneous
  Country: CA (occurrence: CA)
  Receive Date: 20141013
  Receipt Date: 20141013
  Transmission Date: 20150528
  Serious: Yes (Other)
  Sender: FDA-Public Use
  Company Number: CA-TEVA-514146USA

PATIENT
  Age: 67 Year
  Sex: Male

DRUGS (5)
  1. BUPROPION [Suspect]
     Active Substance: BUPROPION
     Indication: SMOKING CESSATION THERAPY
     Dosage: 150 MILLIGRAM DAILY;
     Route: 065
  2. NICOTINE. [Concomitant]
     Active Substance: NICOTINE
     Indication: SMOKING CESSATION THERAPY
  3. BUPROPION [Interacting]
     Active Substance: BUPROPION
     Dosage: DOSE INCREASED ON FOURTH DAY
     Route: 065
  4. VENLAFAXINE [Interacting]
     Active Substance: VENLAFAXINE HYDROCHLORIDE
     Indication: DYSTHYMIC DISORDER
     Dosage: 225 MILLIGRAM DAILY;
     Route: 065
  5. QUETIAPINE [Concomitant]
     Active Substance: QUETIAPINE
     Indication: DYSTHYMIC DISORDER
     Dosage: 50 MG PER DAY + AN ADDITIONAL 25 MG TWICE DAILY AS NEEDED
     Route: 065

REACTIONS (2)
  - Drug interaction [Recovered/Resolved]
  - Hypomania [Recovered/Resolved]
